FAERS Safety Report 5082728-6 (Version None)
Quarter: 2006Q3

REPORT INFORMATION
  Report Type: 
  Country: None (occurrence: None)
  Receive Date: 20060816
  Receipt Date: 20060816
  Transmission Date: 20061208
  Serious: Yes (Hospitalization, Other)
  Sender: FDA-Public Use
  Company Number: None

PATIENT
  Age: 64 Year
  Sex: Male
  Weight: 92.0802 kg

DRUGS (4)
  1. CLADRIBINE [Suspect]
     Indication: HAIRY CELL LEUKAEMIA
     Dosage: IV
     Route: 042
     Dates: start: 20050808, end: 20050815
  2. ZOSYN [Suspect]
     Indication: FEBRILE NEUTROPENIA
     Dosage: IV   ~1-2 DAYS
     Route: 042
  3. ADVICOR [Concomitant]
  4. PROZAC [Concomitant]

REACTIONS (6)
  - CYTOKINE STORM [None]
  - DRUG HYPERSENSITIVITY [None]
  - DYSPNOEA [None]
  - FEBRILE NEUTROPENIA [None]
  - HYPOTENSION [None]
  - THROMBOPHLEBITIS SUPERFICIAL [None]
